FAERS Safety Report 6826052-7 (Version None)
Quarter: 2010Q3

REPORT INFORMATION
  Report Type: 
  Country: None (occurrence: None)
  Receive Date: 20100709
  Receipt Date: 20100705
  Transmission Date: 20110219
  Serious: No
  Sender: FDA-Public Use
  Company Number: CN-ASTRAZENECA-2010SE31042

PATIENT
  Age: 68 Year
  Sex: Male

DRUGS (2)
  1. QUETIAPINE [Suspect]
     Indication: SCHIZOPHRENIA
     Route: 048
     Dates: start: 20080320, end: 20080415
  2. QUETIAPINE [Suspect]
     Route: 048
     Dates: start: 20080416, end: 20100422

REACTIONS (3)
  - PLATELET COUNT DECREASED [None]
  - RED BLOOD CELL COUNT DECREASED [None]
  - WHITE BLOOD CELL COUNT DECREASED [None]
